APPROVED DRUG PRODUCT: DEXTROSE 5%, SODIUM CHLORIDE 0.33% AND POTASSIUM CHLORIDE 0.075% IN PLASTIC CONTAINER
Active Ingredient: DEXTROSE; POTASSIUM CHLORIDE; SODIUM CHLORIDE
Strength: 5GM/100ML;75MG/100ML;330MG/100ML
Dosage Form/Route: INJECTABLE;INJECTION
Application: N018268 | Product #011
Applicant: B BRAUN MEDICAL INC
Approved: Jan 18, 1986 | RLD: No | RS: No | Type: DISCN